FAERS Safety Report 8813151 (Version 1)
Quarter: 2012Q4

REPORT INFORMATION
  Report Type: 
  Country: US (occurrence: US)
  Receive Date: 20120927
  Receipt Date: 20120927
  Transmission Date: 20130627
  Serious: No
  Sender: FDA-Public Use
  Company Number: US-AMGEN-USASP2012040655

PATIENT
  Age: 69 Year
  Sex: Female

DRUGS (5)
  1. PROLIA [Suspect]
     Indication: OSTEOPOROSIS POSTMENOPAUSAL
     Dosage: UNK UNK, q6mo
     Dates: start: 201204
  2. ARMOUR THYROID [Concomitant]
     Dosage: UNK
  3. B-12 DOTS [Concomitant]
     Dosage: UNK
  4. ESTROGEN [Concomitant]
     Dosage: UNK
  5. PROGESTERON [Concomitant]
     Dosage: UNK

REACTIONS (4)
  - Gingival recession [Not Recovered/Not Resolved]
  - Gingival infection [Not Recovered/Not Resolved]
  - Bone erosion [Not Recovered/Not Resolved]
  - Gingival erosion [Not Recovered/Not Resolved]
